FAERS Safety Report 9466049 (Version 1)
Quarter: 2013Q3

REPORT INFORMATION
  Report Type: Spontaneous
  Country: US (occurrence: None)
  Receive Date: 20130816
  Receipt Date: 20130816
  Transmission Date: 20140515
  Serious: No
  Sender: FDA-Public Use
  Company Number: None

PATIENT
  Age: 30 Year
  Sex: Female
  Weight: 56.7 kg

DRUGS (1)
  1. CIPROFLOXACIN [Suspect]
     Indication: TOOTH ABSCESS
     Dosage: 2 PILL  TWICE DAILY  TAKEN BY MOUTH
     Route: 048
     Dates: start: 20120813, end: 20120822

REACTIONS (4)
  - Dysphagia [None]
  - Dyspnoea [None]
  - Gastrooesophageal reflux disease [None]
  - Dyspepsia [None]
